FAERS Safety Report 15085335 (Version 1)
Quarter: 2018Q3

REPORT INFORMATION
  Report Type: Spontaneous
  Country: KR (occurrence: KR)
  Receive Date: 20180628
  Receipt Date: 20180628
  Transmission Date: 20181010
  Serious: Yes (Other)
  Sender: FDA-Public Use
  Company Number: KR-009507513-1806KOR011612

PATIENT
  Age: 72 Year
  Sex: Male

DRUGS (5)
  1. INVANZ [Suspect]
     Active Substance: ERTAPENEM SODIUM
     Dosage: 1 G, ONCE DAILY FOR 3 DAYS
  2. SODIUM CHLORIDE. [Concomitant]
     Active Substance: SODIUM CHLORIDE
  3. OSELTAMIVIR PHOSPHATE. [Concomitant]
     Active Substance: OSELTAMIVIR PHOSPHATE
  4. CEFTRIAXONE SODIUM. [Concomitant]
     Active Substance: CEFTRIAXONE SODIUM
  5. CLARITHROMYCIN. [Concomitant]
     Active Substance: CLARITHROMYCIN
     Dosage: UNK

REACTIONS (1)
  - Toxic epidermal necrolysis [Unknown]
